FAERS Safety Report 26146239 (Version 1)
Quarter: 2025Q4

REPORT INFORMATION
  Report Type: Spontaneous
  Country: US (occurrence: None)
  Receive Date: 20251210
  Receipt Date: 20251210
  Transmission Date: 20260118
  Serious: Yes (Disabling)
  Sender: FDA-CTU
  Company Number: None

PATIENT
  Age: 83 Year
  Sex: Female
  Weight: 54.43 kg

DRUGS (1)
  1. RECLAST [Suspect]
     Active Substance: ZOLEDRONIC ACID
     Dosage: OTHER STRENGTH : UNKNOWN UGM/SQ M;

REACTIONS (6)
  - Urine abnormality [None]
  - Proteinuria [None]
  - Blood creatine increased [None]
  - Nocturia [None]
  - Dehydration [None]
  - Blood pressure decreased [None]

NARRATIVE: CASE EVENT DATE: 20251006
